FAERS Safety Report 9950203 (Version 1)
Quarter: 2014Q1

REPORT INFORMATION
  Report Type: Report from Study
  Country: US (occurrence: US)
  Receive Date: 20140304
  Receipt Date: 20140304
  Transmission Date: 20141002
  Serious: No
  Sender: FDA-Public Use
  Company Number: US-ABBVIE-13P-163-1068232-00

PATIENT
  Age: 70 Year
  Sex: Male

DRUGS (19)
  1. HUMIRA [Suspect]
     Indication: COLITIS ULCERATIVE
     Dates: start: 20130124, end: 20130124
  2. HUMIRA [Suspect]
     Dates: start: 20130207, end: 20130207
  3. HUMIRA [Suspect]
     Dates: start: 20130221
  4. SPIRIVA [Suspect]
     Indication: CHRONIC OBSTRUCTIVE PULMONARY DISEASE
     Route: 055
  5. PROAIR HFA [Suspect]
     Indication: CHRONIC OBSTRUCTIVE PULMONARY DISEASE
     Dosage: 2 PUFF  BID PRN
     Route: 055
  6. NYSTATIN [Suspect]
     Indication: ORAL FUNGAL INFECTION
  7. SYMBICORT [Suspect]
     Indication: CHRONIC OBSTRUCTIVE PULMONARY DISEASE
     Route: 055
  8. SIMVASTATIN [Concomitant]
     Indication: BLOOD CHOLESTEROL INCREASED
  9. PRANDIN [Concomitant]
     Indication: DIABETES MELLITUS
  10. AMLODIPINE [Concomitant]
     Indication: HYPERTENSION
  11. METOPROLOL [Concomitant]
     Indication: HYPERTENSION
  12. COLAZAL [Concomitant]
     Indication: COLITIS
     Dosage: 3 TABS THREE TIMES DAILY
  13. LOMOTIL [Concomitant]
     Indication: DIARRHOEA
  14. BENTYL [Concomitant]
     Indication: PRODUCT USED FOR UNKNOWN INDICATION
     Dosage: 1 TAB QID PRN
  15. NEBULIZER [Concomitant]
     Indication: CHRONIC OBSTRUCTIVE PULMONARY DISEASE
  16. VANCOMYCIN [Concomitant]
     Indication: CLOSTRIDIUM DIFFICILE COLITIS
  17. VANCOMYCIN [Concomitant]
     Dates: start: 20130326
  18. ZOLPIDEM TARTRATE [Concomitant]
     Indication: INSOMNIA
     Dosage: 1 TABLET DAILY PRN
  19. PREDNISONE [Concomitant]
     Indication: PRODUCT USED FOR UNKNOWN INDICATION
     Dosage: DAILY TAPER FROM 40MG TO 5 MG

REACTIONS (3)
  - Clostridium difficile infection [Recovering/Resolving]
  - Pneumonia [Not Recovered/Not Resolved]
  - Oral fungal infection [Unknown]
